FAERS Safety Report 25411151 (Version 4)
Quarter: 2025Q4

REPORT INFORMATION
  Report Type: Report from Study
  Country: US (occurrence: US)
  Receive Date: 20250609
  Receipt Date: 20251201
  Transmission Date: 20260118
  Serious: Yes (Other)
  Sender: ABBVIE
  Company Number: US-ABBVIE-6314077

PATIENT
  Age: 82 Year
  Sex: Female

DRUGS (2)
  1. SKYRIZI [Suspect]
     Active Substance: RISANKIZUMAB-RZAA
     Indication: Psoriasis
     Route: 058
     Dates: start: 20240628
  2. SKYRIZI [Suspect]
     Active Substance: RISANKIZUMAB-RZAA
     Dosage: DISCONTINUED IN 2024
     Route: 058
     Dates: start: 20240429

REACTIONS (7)
  - Rotator cuff repair [Not Recovered/Not Resolved]
  - Lower limb fracture [Recovering/Resolving]
  - Fall [Not Recovered/Not Resolved]
  - Shoulder fracture [Recovering/Resolving]
  - Atrial fibrillation [Recovering/Resolving]
  - Concussion [Recovering/Resolving]
  - Eye contusion [Unknown]

NARRATIVE: CASE EVENT DATE: 20250101
